FAERS Safety Report 9792124 (Version 1)
Quarter: 2013Q4

REPORT INFORMATION
  Report Type: Spontaneous
  Country: US (occurrence: None)
  Receive Date: 20131231
  Receipt Date: 20131231
  Transmission Date: 20140711
  Serious: Yes (Death, Hospitalization)
  Sender: FDA-Public Use
  Company Number: None

PATIENT
  Age: 8 Year
  Sex: Female
  Weight: 29.4 kg

DRUGS (4)
  1. MERCAPTOPURINE [Suspect]
     Dates: end: 20131204
  2. METHOTREXATE [Suspect]
     Dates: end: 20131126
  3. PREDNISONE [Suspect]
     Dates: end: 20131130
  4. VINCRISTINE SULFATE [Suspect]
     Dates: end: 20131126

REACTIONS (4)
  - Respiratory failure [None]
  - Cough [None]
  - Pyrexia [None]
  - Hypoxia [None]
